FAERS Safety Report 5808534-X (Version None)
Quarter: 2008Q3

REPORT INFORMATION
  Report Type: 
  Country: None (occurrence: None)
  Receive Date: 20080709
  Receipt Date: 20080709
  Transmission Date: 20090109
  Serious: Yes (Hospitalization)
  Sender: FDA-Public Use
  Company Number: None

PATIENT
  Age: 45 Year
  Sex: Male
  Weight: 63.05 kg

DRUGS (1)
  1. BEVACIZUMAB [Suspect]
     Dosage: 625 MG OTHER IV
     Route: 042
     Dates: start: 20080131, end: 20080313

REACTIONS (1)
  - VENA CAVA THROMBOSIS [None]
